FAERS Safety Report 5451182-4 (Version None)
Quarter: 2007Q3

REPORT INFORMATION
  Report Type: 
  Country: None (occurrence: None)
  Receive Date: 20070913
  Receipt Date: 20070910
  Transmission Date: 20080115
  Serious: Yes (Other)
  Sender: FDA-Public Use
  Company Number: GB-BRISTOL-MYERS SQUIBB COMPANY-13904289

PATIENT

DRUGS (2)
  1. IFOSFAMIDE [Suspect]
     Indication: SARCOMA
  2. DOXORUBICIN HCL [Suspect]
     Indication: SARCOMA

REACTIONS (4)
  - ENCEPHALOPATHY [None]
  - FEBRILE NEUTROPENIA [None]
  - LEUKOPENIA [None]
  - NEUTROPENIA [None]
